FAERS Safety Report 14773795 (Version 1)
Quarter: 2018Q2

REPORT INFORMATION
  Report Type: Spontaneous
  Country: ES (occurrence: ES)
  Receive Date: 20180413
  Receipt Date: 20180413
  Transmission Date: 20180711
  Serious: Yes (Death)
  Sender: FDA-Public Use
  Company Number: ES-FRESENIUS KABI-FK201804520

PATIENT
  Age: 9 Year
  Sex: Female

DRUGS (5)
  1. ETOPOSIDE (MANUFACTURER UNKNOWN) [Suspect]
     Active Substance: ETOPOSIDE
     Indication: ACUTE MYELOID LEUKAEMIA
     Route: 065
  2. CLOFARABINE. [Suspect]
     Active Substance: CLOFARABINE
     Indication: ACUTE MYELOID LEUKAEMIA
     Route: 065
  3. ALLOGENEIC NATURAL KILLER CELL INFUSION [Concomitant]
     Indication: ACUTE MYELOID LEUKAEMIA
  4. CYCLOPHOSPHAMIDE. [Suspect]
     Active Substance: CYCLOPHOSPHAMIDE
     Indication: ACUTE MYELOID LEUKAEMIA
     Route: 065
  5. INTERLEUKIN-2 [Concomitant]
     Active Substance: ALDESLEUKIN
     Indication: ACUTE MYELOID LEUKAEMIA

REACTIONS (3)
  - Multiple-drug resistance [Fatal]
  - Bacterial sepsis [Fatal]
  - Pneumonia klebsiella [Fatal]
